FAERS Safety Report 17096913 (Version 2)
Quarter: 2019Q4

REPORT INFORMATION
  Report Type: Spontaneous
  Country: US (occurrence: US)
  Receive Date: 20191202
  Receipt Date: 20191204
  Transmission Date: 20200122
  Serious: Yes (Other)
  Sender: FDA-Public Use
  Company Number: US-TEVA-2019-US-1144340

PATIENT
  Sex: Female

DRUGS (7)
  1. ZANTAC [Concomitant]
     Active Substance: RANITIDINE HYDROCHLORIDE
  2. ACETAMINOPHEN. [Concomitant]
     Active Substance: ACETAMINOPHEN
  3. HEALTHY JOINTS [Concomitant]
     Active Substance: UNSPECIFIED INGREDIENT
  4. METOPROLOL. [Concomitant]
     Active Substance: METOPROLOL
  5. CLONAZEPAM-TEVA [Suspect]
     Active Substance: CLONAZEPAM
     Indication: NERVOUSNESS
     Dosage: DOSE STRENGTH:  1
     Route: 065
  6. CLONAZEPAM-TEVA [Suspect]
     Active Substance: CLONAZEPAM
     Indication: ANXIETY
  7. BUSPAR [Concomitant]
     Active Substance: BUSPIRONE HYDROCHLORIDE
     Dosage: TAKING 1-3 TABLETS THREE TIMES A DAY AND HAD GOTTEN DOWN TO ONLY TAKING HALF A TABLET

REACTIONS (11)
  - Arthritis [Unknown]
  - Vomiting [Unknown]
  - Nausea [Unknown]
  - Near death experience [Unknown]
  - Tremor [Unknown]
  - Dyspnoea [Unknown]
  - Dysphagia [Unknown]
  - Product substitution issue [Unknown]
  - Walking aid user [Unknown]
  - Malaise [Unknown]
  - Feeling jittery [Unknown]
